FAERS Safety Report 12382409 (Version 4)
Quarter: 2016Q4

REPORT INFORMATION
  Report Type: Spontaneous
  Country: US (occurrence: US)
  Receive Date: 20160518
  Receipt Date: 20161227
  Transmission Date: 20170207
  Serious: Yes (Life-Threatening)
  Sender: FDA-Public Use
  Company Number: US-CELGENEUS-USA-2016053796

PATIENT
  Age: 58 Year
  Sex: Male

DRUGS (1)
  1. REVLIMID [Suspect]
     Active Substance: LENALIDOMIDE
     Indication: PLASMA CELL MYELOMA
     Dosage: 25 MG
     Route: 048
     Dates: start: 20160125

REACTIONS (2)
  - Thrombosis [Not Recovered/Not Resolved]
  - Rash generalised [Recovering/Resolving]

NARRATIVE: CASE EVENT DATE: 20160330
